FAERS Safety Report 17040951 (Version 1)
Quarter: 2019Q4

REPORT INFORMATION
  Report Type: Spontaneous
  Country: DE (occurrence: DE)
  Receive Date: 20191118
  Receipt Date: 20191118
  Transmission Date: 20200122
  Serious: Yes (Hospitalization)
  Sender: FDA-Public Use
  Company Number: DE-DEXPHARM-20190997

PATIENT
  Age: 57 Year
  Sex: Male

DRUGS (2)
  1. VENLAFAXIN-NEURAXPHARM 75 MG RETARD HARTKAPSELN [Suspect]
     Active Substance: VENLAFAXINE HYDROCHLORIDE
     Indication: DEPRESSION
     Dosage: 75 MG -0-0-0
     Route: 048
     Dates: start: 201908
  2. MIRTAZAPIN [Concomitant]
     Active Substance: MIRTAZAPINE

REACTIONS (5)
  - Anxiety [Not Recovered/Not Resolved]
  - Panic disorder [Not Recovered/Not Resolved]
  - Impaired work ability [Unknown]
  - Depression [Not Recovered/Not Resolved]
  - Drug ineffective [Unknown]

NARRATIVE: CASE EVENT DATE: 2019
